FAERS Safety Report 21211424 (Version 3)
Quarter: 2025Q3

REPORT INFORMATION
  Report Type: Spontaneous
  Country: EU (occurrence: EU)
  Receive Date: 20220815
  Receipt Date: 20250709
  Transmission Date: 20251021
  Serious: Yes (Hospitalization, Other)
  Sender: NOVARTIS
  Company Number: EU-NOVARTISPH-NVSC2022DK166754

PATIENT
  Age: 49 Year
  Sex: Female

DRUGS (19)
  1. VORICONAZOLE [Suspect]
     Active Substance: VORICONAZOLE
     Indication: Fusarium infection
     Dosage: 2000 MG, QD (200 MG TO 1000 MG, BID)
     Route: 048
  2. VORICONAZOLE [Suspect]
     Active Substance: VORICONAZOLE
     Dosage: 800 MG, QD (200 MG TO 400 MG, BID)
     Route: 042
  3. TERBINAFINE [Suspect]
     Active Substance: TERBINAFINE
     Indication: Fusarium infection
     Dosage: 1500 MG, QD (250 MG A DAY TO 500 MG THREE TIMES A DAY, TABLET UNCOATED, ORAL)
     Route: 065
  4. POSACONAZOLE [Suspect]
     Active Substance: POSACONAZOLE
     Indication: Antifungal prophylaxis
     Route: 048
  5. POSACONAZOLE [Suspect]
     Active Substance: POSACONAZOLE
     Indication: Prophylaxis
     Route: 065
  6. POSACONAZOLE [Suspect]
     Active Substance: POSACONAZOLE
     Route: 065
  7. FLUDARABINE PHOSPHATE [Suspect]
     Active Substance: FLUDARABINE PHOSPHATE
     Indication: Acute myeloid leukaemia
     Route: 065
  8. AMBISOME [Suspect]
     Active Substance: AMPHOTERICIN B
     Indication: Fusarium infection
     Dosage: 3 MG/KG, QD
     Route: 065
  9. AMBISOME [Suspect]
     Active Substance: AMPHOTERICIN B
     Indication: Systemic mycosis
     Dosage: 5 MG/KG, QD (2.5 TO 5 MG/KG A DAY, SYSTEMIC)
     Route: 065
  10. AMBISOME [Suspect]
     Active Substance: AMPHOTERICIN B
     Dosage: 5 MG/KG, QD (2.5 TO 5 MG/KG QD)
     Route: 042
  11. AMBISOME [Suspect]
     Active Substance: AMPHOTERICIN B
     Route: 065
  12. AMBISOME [Suspect]
     Active Substance: AMPHOTERICIN B
     Route: 065
  13. GRANULOCYTE COLONY-STIMULATING FACTOR NOS [Suspect]
     Active Substance: GRANULOCYTE COLONY-STIMULATING FACTOR NOS
     Indication: Acute myeloid leukaemia
     Route: 065
  14. AMPHOTERICIN B DEOXYCHOLATE [Suspect]
     Active Substance: AMPHOTERICIN B DEOXYCHOLATE
     Indication: Fusarium infection
     Dosage: 10 ML, TIW (10 ML, THREE TIMES A WEEK)
     Route: 065
  15. CYTARABINE [Suspect]
     Active Substance: CYTARABINE
     Indication: Acute myeloid leukaemia
     Route: 065
  16. IDARUBICIN [Suspect]
     Active Substance: IDARUBICIN
     Indication: Acute myeloid leukaemia
     Route: 065
  17. GEMTUZUMAB OZOGAMICIN [Suspect]
     Active Substance: GEMTUZUMAB OZOGAMICIN
     Indication: Acute myeloid leukaemia
     Route: 065
  18. METHYLPREDNISOLONE [Concomitant]
     Active Substance: METHYLPREDNISOLONE
     Indication: Fusarium infection
     Route: 065
  19. Isotonic Glucose [Concomitant]
     Indication: Fusarium infection
     Route: 065

REACTIONS (9)
  - Peripheral sensory neuropathy [Unknown]
  - Renal failure [Unknown]
  - Neutropenia [Recovered/Resolved]
  - Neurotoxicity [Unknown]
  - Metabolic acidosis [Unknown]
  - Drug ineffective [Not Recovered/Not Resolved]
  - Disease progression [Unknown]
  - Fusarium infection [Unknown]
  - Off label use [Recovered/Resolved]
